FAERS Safety Report 16551474 (Version 1)
Quarter: 2019Q3

REPORT INFORMATION
  Report Type: Report from Study
  Country: US (occurrence: US)
  Receive Date: 20190710
  Receipt Date: 20190710
  Transmission Date: 20191004
  Serious: Yes (Hospitalization)
  Sender: FDA-Public Use
  Company Number: US-TEVA-2019-US-1073032

PATIENT
  Age: 21 Month
  Sex: Male
  Weight: 14.6 kg

DRUGS (19)
  1. CYTARABINE. [Suspect]
     Active Substance: CYTARABINE
     Dosage: LAST DOSE
     Route: 042
     Dates: end: 20181021
  2. CYTARABINE. [Suspect]
     Active Substance: CYTARABINE
     Indication: ACUTE LYMPHOCYTIC LEUKAEMIA
     Dosage: 45 MILLIGRAM DAILY; 45 MG QD
     Route: 042
     Dates: start: 20181008
  3. RUXOLITINIB [Suspect]
     Active Substance: RUXOLITINIB
     Dosage: 60 MILLIGRAM DAILY; ON 26-NOV-2018
     Route: 048
  4. METHOTREXATE. [Suspect]
     Active Substance: METHOTREXATE
     Dosage: HIGH DOSE ON 07-JAN-2019 AND LAST DOSE PRIOR TO FIFTH OCCURRENCE: 28-MAY-2019
     Route: 042
  5. VINCRISTINE [Suspect]
     Active Substance: VINCRISTINE
     Dosage: LAST DOSE PRIOR TO FIFTH OCCURRENCE
     Route: 042
     Dates: end: 20190603
  6. PEGASPARGASE [Suspect]
     Active Substance: PEGASPARGASE
     Dosage: LAST DOSE
     Route: 042
     Dates: end: 20190603
  7. ACETAMINOPHEN. [Concomitant]
     Active Substance: ACETAMINOPHEN
  8. METHOTREXATE. [Suspect]
     Active Substance: METHOTREXATE
     Dosage: 10 MG ONE TIME ON 29-OCT-2018
     Route: 037
  9. MERCAPTOPURINE. [Suspect]
     Active Substance: MERCAPTOPURINE
     Dosage: 15 MG QHS FROM 07-JAN-2019 TO 14-MAR-2019
     Route: 048
  10. RUXOLITINIB [Suspect]
     Active Substance: RUXOLITINIB
     Indication: ACUTE LYMPHOCYTIC LEUKAEMIA
     Dosage: 60 MILLIGRAM DAILY; LAST DOSE PRIOR TO FIFTH OCCURRENCE: 02-JUN-2019
     Route: 048
     Dates: start: 20181008, end: 20181021
  11. RUXOLITINIB [Suspect]
     Active Substance: RUXOLITINIB
     Dosage: 60 MILLIGRAM DAILY; ON 20-MAY-2019
     Route: 048
  12. METHOTREXATE. [Suspect]
     Active Substance: METHOTREXATE
     Indication: ACUTE LYMPHOCYTIC LEUKAEMIA
     Dosage: 10 MG ONE TIME
     Route: 037
     Dates: start: 20181008, end: 20181022
  13. CYCLOPHOSPHAMIDE. [Suspect]
     Active Substance: CYCLOPHOSPHAMIDE
     Indication: ACUTE LYMPHOCYTIC LEUKAEMIA
     Dosage: LAST DOSE PRIOR TO FIFTH OCCURRENCE: 20-MAY-2019
     Route: 042
     Dates: start: 20181008
  14. VINCRISTINE [Suspect]
     Active Substance: VINCRISTINE
     Indication: ACUTE LYMPHOCYTIC LEUKAEMIA
     Route: 042
     Dates: start: 20181022
  15. MERCAPTOPURINE. [Suspect]
     Active Substance: MERCAPTOPURINE
     Indication: ACUTE LYMPHOCYTIC LEUKAEMIA
     Dosage: 36 MG QD ON 26-NOV-2018
     Route: 048
  16. LEUCOVORIN. [Suspect]
     Active Substance: LEUCOVORIN
     Indication: ACUTE LYMPHOCYTIC LEUKAEMIA
     Dosage: ON 09-JAN-2019
     Route: 042
  17. VINCRISTINE [Suspect]
     Active Substance: VINCRISTINE
     Dosage: 0.9 MG ONE TIME ON 29-OCT-2018
     Route: 042
  18. PEGASPARGASE [Suspect]
     Active Substance: PEGASPARGASE
     Indication: ACUTE LYMPHOCYTIC LEUKAEMIA
     Route: 042
     Dates: start: 20181022, end: 20181022
  19. THIOGUANINE [Suspect]
     Active Substance: THIOGUANINE
     Indication: ACUTE LYMPHOCYTIC LEUKAEMIA
     Dosage: 38 MG QD; LAST DOSE PRIOR TO FIFTH OCCURRENCE: 02-JUN-2019
     Route: 048
     Dates: start: 20190520

REACTIONS (1)
  - Febrile neutropenia [Recovered/Resolved]

NARRATIVE: CASE EVENT DATE: 2019
